FAERS Safety Report 12664806 (Version 1)
Quarter: 2016Q3

REPORT INFORMATION
  Report Type: Spontaneous
  Country: US (occurrence: US)
  Receive Date: 20160818
  Receipt Date: 20160818
  Transmission Date: 20161109
  Serious: No
  Sender: FDA-Public Use
  Company Number: US-FRI-1000079061

PATIENT
  Sex: Female

DRUGS (3)
  1. CELEXA [Suspect]
     Active Substance: CITALOPRAM HYDROBROMIDE
  2. LYRICA [Suspect]
     Active Substance: PREGABALIN
  3. SOMA [Suspect]
     Active Substance: CARISOPRODOL

REACTIONS (4)
  - Hypoacusis [Unknown]
  - Frustration tolerance decreased [Unknown]
  - Memory impairment [Unknown]
  - Temperature intolerance [Unknown]
